FAERS Safety Report 17448587 (Version 1)
Quarter: 2020Q1

REPORT INFORMATION
  Report Type: Spontaneous
  Country: US (occurrence: US)
  Receive Date: 20200224
  Receipt Date: 20200224
  Transmission Date: 20200409
  Serious: No
  Sender: FDA-Public Use
  Company Number: US-ACCORD-161326

PATIENT
  Age: 59 Year
  Sex: Female
  Weight: 68.95 kg

DRUGS (4)
  1. BUPROPION ACCORD [Suspect]
     Active Substance: BUPROPION HYDROCHLORIDE
     Indication: WEIGHT CONTROL
     Dosage: STRENGTH: 150 MG, ONCE A DAY
     Dates: start: 201906, end: 20191102
  2. WELLBUTRIN XL [Suspect]
     Active Substance: BUPROPION HYDROCHLORIDE
     Indication: SMOKING CESSATION THERAPY
     Route: 048
     Dates: start: 20190807
  3. HYDROCHLOROTHIAZIDE/VALSARTAN [Concomitant]
     Active Substance: HYDROCHLOROTHIAZIDE\VALSARTAN
     Indication: HYPERTENSION
     Dosage: 80-12.5 MG
     Dates: start: 20190909
  4. TRAMADOL. [Concomitant]
     Active Substance: TRAMADOL

REACTIONS (3)
  - Off label use [Unknown]
  - Oropharyngeal pain [Recovered/Resolved]
  - Tinnitus [Not Recovered/Not Resolved]
